FAERS Safety Report 15899384 (Version 3)
Quarter: 2019Q1

REPORT INFORMATION
  Report Type: Spontaneous
  Country: DE (occurrence: DE)
  Receive Date: 20190201
  Receipt Date: 20190213
  Transmission Date: 20190417
  Serious: Yes (Life-Threatening, Hospitalization, Other)
  Sender: FDA-Public Use
  Company Number: DE-DSJP-DSE-2019-103160

PATIENT

DRUGS (1)
  1. LIXIANA [Suspect]
     Active Substance: EDOXABAN TOSYLATE
     Indication: ATRIAL FIBRILLATION
     Dosage: 60 MG, QD
     Route: 048
     Dates: start: 20181214

REACTIONS (1)
  - Brain neoplasm [Not Recovered/Not Resolved]

NARRATIVE: CASE EVENT DATE: 20190110
